FAERS Safety Report 9971710 (Version 1)
Quarter: 2014Q1

REPORT INFORMATION
  Report Type: Report from Study
  Country: US (occurrence: US)
  Receive Date: 20140306
  Receipt Date: 20140306
  Transmission Date: 20141002
  Serious: No
  Sender: FDA-Public Use
  Company Number: US-ABBVIE-13P-163-1150067-00

PATIENT
  Age: 61 Year
  Sex: Female

DRUGS (11)
  1. HUMIRA [Suspect]
     Indication: RHEUMATOID ARTHRITIS
     Dates: start: 20130528, end: 20130709
  2. COUMADIN [Concomitant]
     Indication: PRODUCT USED FOR UNKNOWN INDICATION
     Dosage: FOR FIVE DAYS
  3. COUMADIN [Concomitant]
     Dosage: FOR TWO DAYS
  4. LOSARTAN/HYDROCHLOORTHIAZIDE [Concomitant]
     Indication: HYPERTENSION
     Dosage: 50 MILLIGRAMS DAILY
  5. FUROSEMIDE [Concomitant]
     Indication: FLUID RETENTION
     Dosage: 40.5 MILLIGRAMS DAILY
  6. FUROSEMIDE [Concomitant]
     Indication: INFLAMMATION
  7. POTASSIUM CHLORIDE [Concomitant]
     Indication: PRODUCT USED FOR UNKNOWN INDICATION
     Dosage: 10 MILLIGRAMS DAILY
  8. SILDENAFIL [Concomitant]
     Indication: PULMONARY HYPERTENSION
     Dosage: 20 MILLIGRAMS DAILY
  9. SIMVASTATIN [Concomitant]
     Indication: BLOOD CHOLESTEROL INCREASED
     Dosage: 20 MILLIGRAMS DAILY
  10. NOVOLOG [Concomitant]
     Indication: PRODUCT USED FOR UNKNOWN INDICATION
     Dosage: 10 UNITS PER SLIDING SCALE DAILY
  11. LANTUS SOLOSTAR [Concomitant]
     Indication: TYPE 2 DIABETES MELLITUS
     Dosage: EVERY EVENING

REACTIONS (4)
  - Anticoagulant therapy [Not Recovered/Not Resolved]
  - Cough [Not Recovered/Not Resolved]
  - Epistaxis [Not Recovered/Not Resolved]
  - Cerumen impaction [Not Recovered/Not Resolved]
